FAERS Safety Report 8058084-8 (Version None)
Quarter: 2012Q1

REPORT INFORMATION
  Report Type: 
  Country: None (occurrence: None)
  Receive Date: 20120118
  Receipt Date: 20120118
  Transmission Date: 20120608
  Serious: No
  Sender: FDA-Public Use
  Company Number: None

PATIENT
  Sex: Female
  Weight: 79.5 kg

DRUGS (4)
  1. FOSAPREPITANT 150MG MERCK [Suspect]
     Indication: NAUSEA
     Dosage: FOSAPREPITANT 150MG X1 IV
     Route: 042
     Dates: start: 20120116
  2. FOSAPREPITANT 150MG MERCK [Suspect]
     Indication: VOMITING
     Dosage: FOSAPREPITANT 150MG X1 IV
     Route: 042
     Dates: start: 20120116
  3. EMEND [Suspect]
     Indication: VOMITING
     Dosage: FOSAPREPITANT 150MG X1 IV
     Route: 042
     Dates: start: 20111222
  4. EMEND [Suspect]
     Indication: NAUSEA
     Dosage: FOSAPREPITANT 150MG X1 IV
     Route: 042
     Dates: start: 20111222

REACTIONS (4)
  - NAUSEA [None]
  - FLUSHING [None]
  - DYSPEPSIA [None]
  - INFUSION RELATED REACTION [None]
